FAERS Safety Report 25048322 (Version 1)
Quarter: 2025Q1

REPORT INFORMATION
  Report Type: Report from Study
  Country: US (occurrence: US)
  Receive Date: 20250307
  Receipt Date: 20250307
  Transmission Date: 20250408
  Serious: Yes (Other)
  Sender: ABBVIE
  Company Number: US-ABBVIE-6075945

PATIENT
  Age: 51 Year
  Sex: Female

DRUGS (2)
  1. RINVOQ [Suspect]
     Active Substance: UPADACITINIB
     Indication: Colitis ulcerative
     Dosage: FORM STRENGTH: 30 MILLIGRAM
     Route: 048
     Dates: start: 202309
  2. DOXYCYCLINE HYCLATE [Suspect]
     Active Substance: DOXYCYCLINE HYCLATE
     Indication: Viral infection
     Route: 065
     Dates: start: 2025, end: 2025

REACTIONS (15)
  - Large intestine polyp [Recovered/Resolved]
  - Pyrexia [Recovered/Resolved]
  - Sinusitis [Not Recovered/Not Resolved]
  - COVID-19 [Recovered/Resolved]
  - Large intestinal ulcer [Recovered/Resolved]
  - Abdominal pain upper [Recovered/Resolved]
  - Haematochezia [Recovered/Resolved]
  - Colitis ulcerative [Unknown]
  - Cough [Not Recovered/Not Resolved]
  - Haematochezia [Recovered/Resolved]
  - Feeling abnormal [Not Recovered/Not Resolved]
  - Viral infection [Not Recovered/Not Resolved]
  - Abdominal pain upper [Recovered/Resolved]
  - Blood cholesterol increased [Unknown]
  - Stress [Unknown]

NARRATIVE: CASE EVENT DATE: 20240101
